FAERS Safety Report 4920138-X (Version None)
Quarter: 2006Q1

REPORT INFORMATION
  Report Type: 
  Country: None (occurrence: None)
  Receive Date: 20060217
  Receipt Date: 20060206
  Transmission Date: 20060701
  Serious: Yes (Other)
  Sender: FDA-Public Use
  Company Number: ST-2005-008314

PATIENT
  Age: 58 Year
  Sex: Male
  Weight: 62.6 kg

DRUGS (16)
  1. OLMESARTAN [Suspect]
     Indication: DIABETIC NEPHROPATHY
     Dosage: 10 MG QD PO
     Route: 048
     Dates: start: 20040701, end: 20040804
  2. OLMESARTAN [Suspect]
     Indication: DIABETIC NEPHROPATHY
     Dosage: 20 MG QD PO
     Route: 048
     Dates: start: 20040805, end: 20040901
  3. OLMESARTAN [Suspect]
     Indication: DIABETIC NEPHROPATHY
     Dosage: 40 MG QD PO
     Route: 048
     Dates: start: 20040902, end: 20060112
  4. PLACEBO [Suspect]
     Dosage: PLACEBO
     Dates: start: 20040520, end: 20040630
  5. PLACEBO [Suspect]
     Dosage: 10 MG QD PO
     Route: 048
     Dates: start: 20040701, end: 20040804
  6. PLACEBO [Suspect]
     Dosage: 20 MG QD PO
     Route: 048
     Dates: start: 20040805, end: 20040901
  7. PLACEBO [Suspect]
     Dosage: 40 MG QD PO
     Route: 048
     Dates: start: 20040902, end: 20060112
  8. NORVASC [Suspect]
     Indication: HYPERTENSION
     Dosage: 2.5 MG QD PO
     Route: 048
     Dates: start: 20041125, end: 20041215
  9. NORVASC [Suspect]
     Indication: HYPERTENSION
     Dosage: 2.5 MG QD PO
     Route: 048
     Dates: start: 20041216
  10. NOVOLIN [Concomitant]
  11. LASIC /SCH/ [Concomitant]
  12. PERSANTIN [Concomitant]
  13. ZYLORIC ^GLAXO WELLCOME^ [Concomitant]
  14. CARNACULIN [Concomitant]
  15. DICLOD [Concomitant]
  16. CYANOCOBALAMIN [Concomitant]

REACTIONS (3)
  - CEREBRAL INFARCTION [None]
  - CEREBROVASCULAR DISORDER [None]
  - ORTHOSTATIC HYPOTENSION [None]
